FAERS Safety Report 4478131-X (Version None)
Quarter: 2004Q4

REPORT INFORMATION
  Report Type: 
  Country: None (occurrence: None)
  Receive Date: 20041013
  Receipt Date: 20040923
  Transmission Date: 20050328
  Serious: Yes (Other)
  Sender: FDA-Public Use
  Company Number: FR_040904872

PATIENT
  Age: 60 Year
  Sex: Male

DRUGS (1)
  1. CELANCE (PERGOLIDE MESYLATE) [Suspect]
     Indication: PARKINSON'S DISEASE
     Dosage: 3 MG/1 DAY
     Dates: start: 20020901

REACTIONS (3)
  - AORTIC VALVE DISEASE [None]
  - CARDIAC MURMUR [None]
  - DYSPNOEA [None]
